FAERS Safety Report 6317601-6 (Version None)
Quarter: 2009Q3

REPORT INFORMATION
  Report Type: 
  Country: None (occurrence: None)
  Receive Date: 20090821
  Receipt Date: 20090815
  Transmission Date: 20100115
  Serious: No
  Sender: FDA-Public Use
  Company Number: US-B.I. PHARMACEUTICALS,INC./RIDGEFIELD-2009-BP-09725BP

PATIENT
  Sex: Female

DRUGS (6)
  1. SPIRIVA [Suspect]
     Indication: CHRONIC OBSTRUCTIVE PULMONARY DISEASE
     Dosage: 18 MCG
     Route: 055
     Dates: start: 20070101
  2. TOPROL-XL [Concomitant]
     Indication: HYPERTENSION
  3. CLONIDINE [Concomitant]
     Indication: HYPERTENSION
  4. ZOCOR [Concomitant]
     Indication: BLOOD CHOLESTEROL
  5. LANTUS [Concomitant]
     Indication: DIABETES MELLITUS
  6. LASIX [Concomitant]
     Indication: HYPERTENSION

REACTIONS (4)
  - DYSURIA [None]
  - ENURESIS [None]
  - RESIDUAL URINE [None]
  - URINARY TRACT INFECTION [None]
